FAERS Safety Report 6787460-6 (Version None)
Quarter: 2010Q2

REPORT INFORMATION
  Report Type: 
  Country: None (occurrence: None)
  Receive Date: 20100623
  Receipt Date: 20070528
  Transmission Date: 20101027
  Serious: Yes (Other)
  Sender: FDA-Public Use
  Company Number: US-PFIZER INC-2007025455

PATIENT
  Sex: Female

DRUGS (1)
  1. DEPO-PROVERA SUSPENSION/INJ [Suspect]
     Indication: DYSMENORRHOEA
     Dosage: LAST INJECTION
     Route: 030
     Dates: start: 20020101, end: 20020101

REACTIONS (2)
  - BREAST CANCER FEMALE [None]
  - WEIGHT INCREASED [None]
